FAERS Safety Report 22279632 (Version 1)
Quarter: 2023Q2

REPORT INFORMATION
  Report Type: Report from Study
  Country: CA (occurrence: CA)
  Receive Date: 20230503
  Receipt Date: 20230503
  Transmission Date: 20230721
  Serious: Yes (Hospitalization, Other)
  Sender: FDA-Public Use
  Company Number: CA-HLS-202300693

PATIENT
  Age: 57 Year
  Sex: Male
  Weight: 71 kg

DRUGS (17)
  1. CLOZARIL [Suspect]
     Active Substance: CLOZAPINE
     Indication: Schizophrenia
     Route: 048
     Dates: start: 20180928
  2. CLOZARIL [Suspect]
     Active Substance: CLOZAPINE
     Indication: Schizophrenia
     Dosage: 100 MG
     Route: 048
     Dates: start: 20190130, end: 20230130
  3. TAMSULOSIN [Concomitant]
     Active Substance: TAMSULOSIN
     Indication: Product used for unknown indication
     Dosage: 0.4 MG 1 CAPSULE 1 TIME DAILY
     Route: 065
  4. ROSUVASTATIN [Concomitant]
     Active Substance: ROSUVASTATIN
     Indication: Product used for unknown indication
     Dosage: 10 MG 1 TABLET EVERY DAY
     Route: 065
  5. QUETIAPINE [Concomitant]
     Active Substance: QUETIAPINE
     Indication: Product used for unknown indication
     Dosage: 200 MG 3 TABLETS EVERY DAY
     Route: 065
  6. QUETIAPINE [Concomitant]
     Active Substance: QUETIAPINE
     Indication: Product used for unknown indication
     Dosage: 25 MG 1 TABLET 2 TIMES DAILY
     Route: 065
  7. PERINDOPRIL ERBUMINE [Concomitant]
     Active Substance: PERINDOPRIL ERBUMINE
     Indication: Product used for unknown indication
     Dosage: 4 MG 1 TABLET 1 TIME
     Route: 065
  8. OMEGA 3 [Concomitant]
     Active Substance: CAPSAICIN
     Indication: Product used for unknown indication
     Dosage: 1 CAPSULE 1 TIME DAILY FOR 7 DAYS
     Route: 065
  9. VITAMINS [Concomitant]
     Active Substance: VITAMINS
     Indication: Product used for unknown indication
     Dosage: 1 TABLET 1 TIME DAILY FOR 7 DAYS
     Route: 065
  10. MIRTAZAPINE [Concomitant]
     Active Substance: MIRTAZAPINE
     Indication: Product used for unknown indication
     Dosage: 30 MG 2 TABLETS EVERY DAY
     Route: 065
  11. Levodopa - carbidopa [Concomitant]
     Indication: Product used for unknown indication
     Dosage: 100-25 MG 2 TABLETS
     Route: 065
  12. ISOPTO ATROPINE [Concomitant]
     Active Substance: ATROPINE SULFATE
     Indication: Product used for unknown indication
     Dosage: 1 DROP 1% 2 TIMES DAILY
     Route: 065
  13. ENTACAPONE [Concomitant]
     Active Substance: ENTACAPONE
     Indication: Product used for unknown indication
     Dosage: 200 MG 1 TABLET 3 TIMES DAILY
     Route: 065
  14. DIVALPROEX SODIUM [Concomitant]
     Active Substance: DIVALPROEX SODIUM
     Indication: Product used for unknown indication
     Dosage: 250 MG 3 TABLETS EVERYDAY
     Route: 065
  15. BUPROPION [Concomitant]
     Active Substance: BUPROPION
     Indication: Product used for unknown indication
     Dosage: 100 MG 2 TABLETS 1 TIME DAILY
     Route: 065
  16. VITAMIN D [Concomitant]
     Active Substance: VITAMIN D NOS
     Indication: Product used for unknown indication
     Dosage: 1000 U 1 TABLET 1 TIME DAILY
     Route: 065
  17. TRIHEXYPHENIDYL [Concomitant]
     Active Substance: TRIHEXYPHENIDYL
     Indication: Product used for unknown indication
     Dosage: 5 MG 1 TABLET 2 TIMES DAILY
     Route: 065

REACTIONS (8)
  - Gamma-glutamyltransferase decreased [Unknown]
  - Anaemia [Not Recovered/Not Resolved]
  - Neutropenia [Recovered/Resolved]
  - Platelet count decreased [Recovered/Resolved]
  - Urinary retention [Unknown]
  - White blood cell count decreased [Recovered/Resolved]
  - White blood cell count decreased [Recovered/Resolved]
  - White blood cell count decreased [Recovered/Resolved]

NARRATIVE: CASE EVENT DATE: 20210729
